FAERS Safety Report 10747833 (Version 12)
Quarter: 2020Q4

REPORT INFORMATION
  Report Type: Spontaneous
  Country: US (occurrence: US)
  Receive Date: 20150129
  Receipt Date: 20201204
  Transmission Date: 20210113
  Serious: Yes (Hospitalization)
  Sender: FDA-Public Use
  Company Number: US-PFIZER INC-2015038891

PATIENT
  Age: 75 Year
  Sex: Female
  Weight: 71 kg

DRUGS (11)
  1. LYRICA [Suspect]
     Active Substance: PREGABALIN
     Dosage: 75 MG, THRICE A DAY
     Route: 048
  2. LYRICA [Suspect]
     Active Substance: PREGABALIN
     Dosage: 2 DF, DAILY
  3. ALEVE [Concomitant]
     Active Substance: NAPROXEN SODIUM
     Indication: TRIGEMINAL NEURALGIA
     Dosage: 880 MG, DAILY (2 TABLETS TAKEN BY MOUTH IN THE MORNING AND 2 TABLETS TAKEN BY MOUTH AT NIGHT)
     Route: 048
  4. LYRICA [Suspect]
     Active Substance: PREGABALIN
     Dosage: 75 MG, THRICE A DAY
     Route: 048
  5. TEGRETOL [Concomitant]
     Active Substance: CARBAMAZEPINE
     Dosage: 200 MG, 4X/DAY (2 IN MORNING AND 2 AT NIGHT)
  6. TEGRETOL [Concomitant]
     Active Substance: CARBAMAZEPINE
     Dosage: 200 MG (200MG, 2A.M- 2 P.M)
  7. LYRICA [Suspect]
     Active Substance: PREGABALIN
     Dosage: 75 MG, 3X/DAY
     Route: 048
  8. LYRICA [Suspect]
     Active Substance: PREGABALIN
     Indication: TRIGEMINAL NEURALGIA
     Dosage: 75 MG, TWICE A DAY
  9. ALEVE [Concomitant]
     Active Substance: NAPROXEN SODIUM
     Indication: HEADACHE
     Dosage: 270 MG, AS NEEDED, (MIGHT BE ONCE EVERY 3 MONTHS)
     Route: 048
  10. LYRICA [Suspect]
     Active Substance: PREGABALIN
     Dosage: 75 MG, 3X/DAY [DISPENSE 270(TWO HUNDRED AND SEVENTY) CAPSULE, DURATION: 90 DAYS])
     Route: 048
  11. LYRICA [Suspect]
     Active Substance: PREGABALIN
     Indication: FACIAL NEURALGIA
     Dosage: 75 MG, THRICE A DAY

REACTIONS (12)
  - Feeling abnormal [Unknown]
  - Speech disorder [Unknown]
  - Hypoacusis [Unknown]
  - Product dose omission issue [Unknown]
  - Facial pain [Not Recovered/Not Resolved]
  - Myalgia [Unknown]
  - Illness [Unknown]
  - Alanine aminotransferase decreased [Unknown]
  - Intentional product misuse [Unknown]
  - Taste disorder [Unknown]
  - Drug ineffective [Unknown]
  - Fear [Unknown]
